FAERS Safety Report 6600656-9 (Version None)
Quarter: 2010Q1

REPORT INFORMATION
  Report Type: 
  Country: None (occurrence: None)
  Receive Date: 20100223
  Receipt Date: 20100223
  Transmission Date: 20100710
  Serious: Yes (Hospitalization)
  Sender: FDA-Public Use
  Company Number: None

PATIENT
  Age: 80 Year
  Sex: Male
  Weight: 88 kg

DRUGS (10)
  1. WARFARIN [Suspect]
     Indication: ANTICOAGULANT THERAPY
     Dosage: PER DAILY INR DAILY PO
     Route: 048
     Dates: start: 20091210, end: 20091215
  2. WARFARIN [Suspect]
     Indication: HIP SURGERY
     Dosage: PER DAILY INR DAILY PO
     Route: 048
     Dates: start: 20091210, end: 20091215
  3. CEFAZOLIN [Concomitant]
  4. CEFTRIAXONE [Concomitant]
  5. CEFUROXIME [Concomitant]
  6. DOCUSATE CALCIUM [Concomitant]
  7. FERROUS SULFATE TAB [Concomitant]
  8. POTASSIUM CHLORIDE [Concomitant]
  9. MORPHINE SULFATE [Concomitant]
  10. SEASONAL INFLUENZA VACCINE [Concomitant]

REACTIONS (6)
  - ACTIVITIES OF DAILY LIVING IMPAIRED [None]
  - AGITATION [None]
  - BLINDNESS [None]
  - CEREBRAL INFARCTION [None]
  - COGNITIVE DISORDER [None]
  - CONFUSIONAL STATE [None]
